FAERS Safety Report 9894061 (Version 1)
Quarter: 2014Q1

REPORT INFORMATION
  Report Type: Spontaneous
  Country: US (occurrence: US)
  Receive Date: 20140213
  Receipt Date: 20140213
  Transmission Date: 20141002
  Serious: No
  Sender: FDA-Public Use
  Company Number: US-PFIZER INC-2014037322

PATIENT
  Age: 33 Year
  Sex: Female
  Weight: 49.89 kg

DRUGS (2)
  1. ADVIL [Suspect]
     Indication: DYSMENORRHOEA
     Dosage: 200 MG, AS NEEDED
     Route: 048
     Dates: end: 201401
  2. ZYRTEC [Concomitant]
     Indication: SEASONAL ALLERGY
     Dosage: UNK, AS NEEDED

REACTIONS (3)
  - Rhinorrhoea [Unknown]
  - Sneezing [Unknown]
  - Throat irritation [Unknown]
